FAERS Safety Report 22083685 (Version 7)
Quarter: 2024Q1

REPORT INFORMATION
  Report Type: Spontaneous
  Country: US (occurrence: US)
  Receive Date: 20230310
  Receipt Date: 20240320
  Transmission Date: 20240410
  Serious: Yes (Other)
  Sender: FDA-Public Use
  Company Number: US-PFIZER INC-PV202300044759

PATIENT
  Age: 68 Year
  Sex: Female
  Weight: 113.47 kg

DRUGS (5)
  1. BOSULIF [Suspect]
     Active Substance: BOSUTINIB MONOHYDRATE
     Indication: Chronic myeloid leukaemia
     Dosage: 500 MG
  2. BOSULIF [Suspect]
     Active Substance: BOSUTINIB MONOHYDRATE
     Dosage: 200 MG, 1X/DAY
     Route: 048
  3. BOSULIF [Suspect]
     Active Substance: BOSUTINIB MONOHYDRATE
     Dosage: 200 MG (TAKE 2 (OF 100 MG TABLETS) BY MOUTH DAILY #60), DAILY
     Route: 048
  4. BOSULIF [Suspect]
     Active Substance: BOSUTINIB MONOHYDRATE
     Dosage: 200 MG AT BEDTIME
     Route: 048
  5. POMALYST [Concomitant]
     Active Substance: POMALIDOMIDE
     Indication: Plasma cell myeloma
     Dosage: AT BEDTIME
     Route: 048
     Dates: start: 202307

REACTIONS (5)
  - Second primary malignancy [Unknown]
  - Neoplasm malignant [Unknown]
  - Asthma [Unknown]
  - Memory impairment [Unknown]
  - Confusional state [Unknown]
